FAERS Safety Report 12859558 (Version 2)
Quarter: 2016Q4

REPORT INFORMATION
  Report Type: Spontaneous
  Country: TW (occurrence: TW)
  Receive Date: 20161018
  Receipt Date: 20161223
  Transmission Date: 20170207
  Serious: Yes (Hospitalization, Other)
  Sender: FDA-Public Use
  Company Number: TW-MYLANLABS-2016M1044198

PATIENT

DRUGS (11)
  1. SULPIRIDE [Suspect]
     Active Substance: SULPIRIDE
     Dosage: 1 DF, AM
     Dates: start: 20140323
  2. CLOZAPINE. [Suspect]
     Active Substance: CLOZAPINE
     Indication: SCHIZOPHRENIA
     Dosage: UNK
     Dates: start: 20081126
  3. FLUVOXAMINE [Suspect]
     Active Substance: FLUVOXAMINE
     Dosage: 100 MG, HS
     Dates: start: 20140323
  4. SULPIRIDE [Suspect]
     Active Substance: SULPIRIDE
     Indication: SCHIZOPHRENIA
     Dosage: 1 DF, AM
  5. FLUVOXAMINE [Suspect]
     Active Substance: FLUVOXAMINE
     Indication: SCHIZOPHRENIA
     Dosage: 100 MG, HS
  6. CLOZAPINE. [Suspect]
     Active Substance: CLOZAPINE
     Dosage: 150 MG, HS
     Dates: start: 20140323
  7. SULPIRIDE [Suspect]
     Active Substance: SULPIRIDE
     Dosage: 1 DF, HS
  8. CHLORPHENIRAMINE                   /00072501/ [Concomitant]
     Active Substance: CHLORPHENIRAMINE
     Indication: SCHIZOPHRENIA
     Dosage: 4 MG, TID
  9. CLOZAPINE. [Suspect]
     Active Substance: CLOZAPINE
     Dosage: 150 MG, HS
  10. CLOZAPINE. [Suspect]
     Active Substance: CLOZAPINE
     Dosage: 100 MG, HS
  11. SULPIRIDE [Suspect]
     Active Substance: SULPIRIDE
     Dosage: 1 DF, HS

REACTIONS (7)
  - Influenza [Unknown]
  - Schizophrenia [Unknown]
  - Wrong technique in product usage process [Unknown]
  - Drug interaction [Unknown]
  - Body temperature increased [Unknown]
  - Pneumonia aspiration [Unknown]
  - Salivary hypersecretion [Unknown]

NARRATIVE: CASE EVENT DATE: 20140324
